FAERS Safety Report 8503621-X (Version None)
Quarter: 2012Q3

REPORT INFORMATION
  Report Type: 
  Country: None (occurrence: None)
  Receive Date: 20120711
  Receipt Date: 20120705
  Transmission Date: 20120928
  Serious: Yes (Other)
  Sender: FDA-Public Use
  Company Number: PHEH2012US013272

PATIENT
  Sex: Female

DRUGS (5)
  1. IBUPROFEN [Concomitant]
     Indication: ARTHRALGIA
     Dosage: 2400 MG ONCE A DAY
  2. FANAPT [Suspect]
     Indication: MOOD ALTERED
     Dosage: 8 MG, QD
     Route: 048
     Dates: end: 20111101
  3. CYMBALTA [Concomitant]
     Indication: BIPOLAR DISORDER
     Dosage: 30 MG ONCE A DAY
     Route: 048
  4. LISINOPRIL [Concomitant]
     Indication: BLOOD PRESSURE
     Dosage: 20 MG, BID
     Route: 048
  5. METOPROLOL TARTRATE [Concomitant]
     Indication: HEART RATE
     Dosage: 25 MG, BID
     Route: 048

REACTIONS (5)
  - RENAL DISORDER [None]
  - DYSPNOEA [None]
  - PAIN IN EXTREMITY [None]
  - HEPATITIS [None]
  - ARTHRALGIA [None]
